FAERS Safety Report 25172365 (Version 1)
Quarter: 2025Q2

REPORT INFORMATION
  Report Type: Spontaneous
  Country: US (occurrence: US)
  Receive Date: 20250408
  Receipt Date: 20250408
  Transmission Date: 20250717
  Serious: Yes (Other)
  Sender: MYLAN
  Company Number: US-MYLANLABS-2025M1030046

PATIENT
  Age: 76 Year
  Sex: Female

DRUGS (6)
  1. ACITRETIN [Suspect]
     Active Substance: ACITRETIN
     Indication: Squamous cell carcinoma of skin
  2. ACITRETIN [Suspect]
     Active Substance: ACITRETIN
     Indication: Paradoxical drug reaction
  3. CLOBETASOL [Suspect]
     Active Substance: CLOBETASOL
     Indication: Squamous cell carcinoma of skin
  4. CLOBETASOL [Suspect]
     Active Substance: CLOBETASOL
     Indication: Paradoxical drug reaction
  5. FLUOROURACIL [Suspect]
     Active Substance: FLUOROURACIL
     Indication: Squamous cell carcinoma of skin
  6. FLUOROURACIL [Suspect]
     Active Substance: FLUOROURACIL
     Indication: Paradoxical drug reaction

REACTIONS (2)
  - Drug ineffective for unapproved indication [Unknown]
  - Off label use [Unknown]
